FAERS Safety Report 5881082-7 (Version None)
Quarter: 2008Q3

REPORT INFORMATION
  Report Type: 
  Country: None (occurrence: None)
  Receive Date: 20080910
  Receipt Date: 20080825
  Transmission Date: 20090109
  Serious: Yes (Other)
  Sender: FDA-Public Use
  Company Number: SP-2006-002901

PATIENT
  Age: 61 Year
  Sex: Female
  Weight: 90 kg

DRUGS (3)
  1. OLMESARTAN MEDOXOMIL [Suspect]
     Indication: HYPERTENSION
     Dosage: 20 MG (20 MG,L IN 1 D), PER ORAL
     Route: 048
     Dates: start: 20050614, end: 20060116
  2. FUROSEMIDE [Concomitant]
  3. SIMVASTATIN [Concomitant]

REACTIONS (1)
  - MENTAL IMPAIRMENT [None]
